FAERS Safety Report 4777258-2 (Version None)
Quarter: 2005Q3

REPORT INFORMATION
  Report Type: 
  Country: None (occurrence: None)
  Receive Date: 20050923
  Receipt Date: 20050429
  Transmission Date: 20060218
  Serious: Yes (Other)
  Sender: FDA-Public Use
  Company Number: 2005GB00851

PATIENT
  Age: 469 Month
  Sex: Male

DRUGS (6)
  1. SEROQUEL [Suspect]
     Indication: SCHIZOAFFECTIVE DISORDER
     Route: 048
     Dates: start: 20030301
  2. CLOPIXOL [Suspect]
     Indication: SCHIZOAFFECTIVE DISORDER
     Dosage: CYCLICAL
     Route: 030
     Dates: start: 20000401
  3. LITHIUM CARBONATE [Suspect]
     Route: 048
     Dates: start: 20000601
  4. PAROXETINE [Concomitant]
     Indication: SCHIZOAFFECTIVE DISORDER
     Route: 048
     Dates: start: 20010801
  5. INSULIN [Concomitant]
  6. PAIN KILLERS [Concomitant]

REACTIONS (1)
  - PITTING OEDEMA [None]
